FAERS Safety Report 6110062-1 (Version None)
Quarter: 2009Q1

REPORT INFORMATION
  Report Type: 
  Country: None (occurrence: None)
  Receive Date: 20090310
  Receipt Date: 20090108
  Transmission Date: 20090719
  Serious: No
  Sender: FDA-Public Use
  Company Number: A0762670A

PATIENT
  Age: 38 Year
  Sex: Female

DRUGS (1)
  1. NICORETTE WHITE ICE OTC 2MG [Suspect]

REACTIONS (1)
  - ABDOMINAL DISCOMFORT [None]
